FAERS Safety Report 6543550-4 (Version None)
Quarter: 2010Q1

REPORT INFORMATION
  Report Type: 
  Country: None (occurrence: None)
  Receive Date: 20100120
  Receipt Date: 20100113
  Transmission Date: 20100710
  Serious: Yes (Other)
  Sender: FDA-Public Use
  Company Number: US-ABBOTT-10P-163-0619554-00

PATIENT
  Sex: Female
  Weight: 77.18 kg

DRUGS (7)
  1. HUMIRA [Suspect]
     Indication: RHEUMATOID ARTHRITIS
     Route: 058
     Dates: end: 20090814
  2. HUMIRA [Suspect]
     Route: 058
     Dates: start: 20091012
  3. HUMIRA [Suspect]
     Dates: end: 20090814
  4. HUMIRA [Suspect]
     Dates: start: 20091012
  5. PREDNISONE [Concomitant]
     Indication: RHEUMATOID ARTHRITIS
     Route: 048
  6. METHOTREXATE [Concomitant]
     Indication: RHEUMATOID ARTHRITIS
     Route: 048
  7. OXYBUTYNIN [Concomitant]
     Indication: URINARY INCONTINENCE

REACTIONS (4)
  - ARTHRALGIA [None]
  - DEVICE DISLOCATION [None]
  - URINARY INCONTINENCE [None]
  - URINARY TRACT INFECTION [None]
